FAERS Safety Report 25166643 (Version 2)
Quarter: 2025Q2

REPORT INFORMATION
  Report Type: Report from Study
  Country: DE (occurrence: DE)
  Receive Date: 20250407
  Receipt Date: 20250515
  Transmission Date: 20250717
  Serious: Yes (Life-Threatening, Hospitalization, Other)
  Sender: CSL BEHRING
  Company Number: DE-BEH-2025200674

PATIENT
  Age: 82 Year
  Sex: Female
  Weight: 79 kg

DRUGS (1)
  1. PRIVIGEN [Suspect]
     Active Substance: HUMAN IMMUNOGLOBULIN G
     Indication: Secondary immunodeficiency
     Dosage: UNK, QMT (EVERY 28 DAYS)
     Route: 042
     Dates: start: 20250108

REACTIONS (9)
  - Ileus [Recovered/Resolved]
  - Bile duct stone [Unknown]
  - Enterococcal infection [Unknown]
  - Abdominal pain [Unknown]
  - Nausea [Unknown]
  - Vomiting [Unknown]
  - Intraductal papillary mucinous neoplasm [Unknown]
  - B-cell lymphoma [Unknown]
  - Pancreatic cyst [Unknown]

NARRATIVE: CASE EVENT DATE: 20250125
